FAERS Safety Report 23283863 (Version 1)
Quarter: 2023Q4

REPORT INFORMATION
  Report Type: Spontaneous
  Country: US (occurrence: US)
  Receive Date: 20231211
  Receipt Date: 20231211
  Transmission Date: 20240109
  Serious: No
  Sender: FDA-Public Use
  Company Number: US-JNJFOC-20231207441

PATIENT
  Age: 83 Year
  Sex: Female

DRUGS (2)
  1. XARELTO [Suspect]
     Active Substance: RIVAROXABAN
     Indication: Cerebrovascular accident prophylaxis
     Route: 048
     Dates: start: 2023
  2. XARELTO [Suspect]
     Active Substance: RIVAROXABAN
     Indication: Ischaemic heart disease prophylaxis

REACTIONS (2)
  - Rash [Not Recovered/Not Resolved]
  - Wound haemorrhage [Unknown]
